FAERS Safety Report 20686697 (Version 2)
Quarter: 2022Q2

REPORT INFORMATION
  Report Type: Spontaneous
  Country: US (occurrence: US)
  Receive Date: 20220407
  Receipt Date: 20220413
  Transmission Date: 20220721
  Serious: No
  Sender: FDA-Public Use
  Company Number: US-SANOFI-01045622

PATIENT
  Age: 64 Year
  Sex: Male

DRUGS (2)
  1. DUPIXENT [Suspect]
     Active Substance: DUPILUMAB
     Dosage: 300 MG, QOW
  2. SODIUM [Concomitant]
     Active Substance: SODIUM

REACTIONS (3)
  - Injection site pain [Unknown]
  - Product use issue [Unknown]
  - Product dose omission issue [Unknown]
